FAERS Safety Report 11504124 (Version 2)
Quarter: 2015Q4

REPORT INFORMATION
  Report Type: Report from Study
  Country: AR (occurrence: AR)
  Receive Date: 20150914
  Receipt Date: 20151005
  Transmission Date: 20160304
  Serious: Yes (Other)
  Sender: FDA-Public Use
  Company Number: PHHY2015AR109878

PATIENT
  Age: 69 Year
  Sex: Female

DRUGS (4)
  1. STALEVO [Suspect]
     Active Substance: CARBIDOPA\ENTACAPONE\LEVODOPA
     Indication: EYELID PTOSIS
     Dosage: 100 OT, QD
     Route: 065
     Dates: end: 201508
  2. STALEVO [Suspect]
     Active Substance: CARBIDOPA\ENTACAPONE\LEVODOPA
     Indication: MYASTHENIA GRAVIS
  3. TEGRETOL [Suspect]
     Active Substance: CARBAMAZEPINE
     Indication: EYELID PTOSIS
     Dosage: 200 MG, EVERY 8 HOURS
     Route: 065
  4. TEGRETOL [Suspect]
     Active Substance: CARBAMAZEPINE
     Dosage: 2 DF (1 TABLET AT 8 AM AND 1 TABLET AT 8 PM)
     Route: 065

REACTIONS (8)
  - Hyperthyroidism [Unknown]
  - Eyelid ptosis [Recovered/Resolved]
  - Condition aggravated [Recovered/Resolved]
  - Balance disorder [Recovered/Resolved]
  - Product use issue [Unknown]
  - Anxiety [Not Recovered/Not Resolved]
  - Asthenia [Recovered/Resolved]
  - Fall [Recovered/Resolved]

NARRATIVE: CASE EVENT DATE: 201503
